FAERS Safety Report 19525080 (Version 1)
Quarter: 2021Q3

REPORT INFORMATION
  Report Type: Spontaneous
  Country: CN (occurrence: CN)
  Receive Date: 20210712
  Receipt Date: 20210712
  Transmission Date: 20211014
  Serious: Yes (Hospitalization, Other)
  Sender: FDA-Public Use
  Company Number: CN-BAXTER-2021BAX019773

PATIENT
  Age: 59 Year
  Sex: Female
  Weight: 55 kg

DRUGS (7)
  1. 0.9% SODIUM CHLORIDE INJECTION [Suspect]
     Active Substance: SODIUM CHLORIDE
     Dosage: CHOP REGIMEN CHEMOTHERAPY; 0.9% SODIUM CHLORIDE INJECTION 100ML + PHARMORUBICIN INJECTION 60MG, 1HR
     Route: 041
     Dates: start: 20210617, end: 20210617
  2. 0.9% SODIUM CHLORIDE INJECTION [Suspect]
     Active Substance: SODIUM CHLORIDE
     Indication: MEDICATION DILUTION
     Dosage: CHOP REGIMEN CHEMOTHERAPY; 0.9% SODIUM CHLORIDE INJECTION 250 ML + ENDOXAN FOR INJECTION 1200 MG
     Route: 041
     Dates: start: 20210617, end: 20210617
  3. ENDOXAN [Suspect]
     Active Substance: CYCLOPHOSPHAMIDE
     Indication: NON-HODGKIN^S LYMPHOMA
     Dosage: CHOP REGIMEN CHEMOTHERAPY; 0.9% SODIUM CHLORIDE INJECTION 250 ML + ENDOXAN FOR INJECTION 1200 MG
     Route: 041
     Dates: start: 20210617, end: 20210617
  4. 0.9% SODIUM CHLORIDE INJECTION [Suspect]
     Active Substance: SODIUM CHLORIDE
     Dosage: CHOP REGIMEN CHEMOTHERAPY; 0.9% SODIUM CHLORIDE INJECTION 20 ML +VINDESINE SULFATE INJECTION 4 MG
     Route: 040
     Dates: start: 20210617, end: 20210617
  5. XIAIKE [Suspect]
     Active Substance: VINDESINE
     Indication: NON-HODGKIN^S LYMPHOMA
     Dosage: CHOP REGIMEN CHEMOTHERAPY; 0.9% SODIUM CHLORIDE INJECTION 20 ML +VINDESINE SULFATE INJECTION 4 MG
     Route: 040
     Dates: start: 20210617, end: 20210617
  6. PHARMORUBICIN [Suspect]
     Active Substance: EPIRUBICIN
     Indication: NON-HODGKIN^S LYMPHOMA
     Dosage: CHOP REGIMEN CHEMOTHERAPY; 0.9% SODIUM CHLORIDE INJECTION 100ML + PHARMORUBICIN INJECTION 60MG, 1HR
     Route: 041
     Dates: start: 20210617, end: 20210617
  7. PREDNISONE ACETATE [Suspect]
     Active Substance: PREDNISONE ACETATE
     Indication: NON-HODGKIN^S LYMPHOMA
     Dosage: TABLETS; CHOP REGIMEN CHEMOTHERAPY
     Route: 048
     Dates: start: 20210617, end: 20210617

REACTIONS (1)
  - Myelosuppression [Unknown]

NARRATIVE: CASE EVENT DATE: 20210624
